FAERS Safety Report 6882121-7 (Version None)
Quarter: 2010Q3

REPORT INFORMATION
  Report Type: 
  Country: None (occurrence: None)
  Receive Date: 20100702
  Receipt Date: 20100215
  Transmission Date: 20110219
  Serious: Yes (Other)
  Sender: FDA-Public Use
  Company Number: 2010020206

PATIENT
  Sex: Male

DRUGS (1)
  1. ZOLOFT [Suspect]
     Dosage: 20 MG

REACTIONS (3)
  - PANIC ATTACK [None]
  - SYNCOPE [None]
  - THINKING ABNORMAL [None]
